FAERS Safety Report 19248068 (Version 2)
Quarter: 2023Q2

REPORT INFORMATION
  Report Type: Spontaneous
  Country: US (occurrence: US)
  Receive Date: 20210512
  Receipt Date: 20230529
  Transmission Date: 20230722
  Serious: No
  Sender: FDA-Public Use
  Company Number: US-UCBSA-2020025943

PATIENT
  Age: 23 Year
  Sex: Female

DRUGS (1)
  1. CIMZIA [Suspect]
     Active Substance: CERTOLIZUMAB PEGOL
     Indication: Rheumatoid arthritis
     Dosage: 400 MILLIGRAM, OTHER
     Route: 058
     Dates: start: 202006, end: 2020

REACTIONS (5)
  - Pyrexia [Unknown]
  - Injection site rash [Unknown]
  - Rash pruritic [Unknown]
  - Rash erythematous [Unknown]
  - Hypersensitivity [Unknown]

NARRATIVE: CASE EVENT DATE: 20200601
